FAERS Safety Report 25942659 (Version 1)
Quarter: 2025Q4

REPORT INFORMATION
  Report Type: Spontaneous
  Country: US (occurrence: US)
  Receive Date: 20251021
  Receipt Date: 20251021
  Transmission Date: 20260117
  Serious: No
  Sender: Vantive US Healthcare
  Company Number: US-VANTIVE-2025VAN004776

PATIENT

DRUGS (1)
  1. EXTRANEAL [Suspect]
     Active Substance: CALCIUM CHLORIDE\ICODEXTRIN\MAGNESIUM CHLORIDE\SODIUM CHLORIDE\SODIUM LACTATE
     Dosage: UNK
     Route: 033

REACTIONS (4)
  - Fatigue [Unknown]
  - Skin exfoliation [Unknown]
  - Pain [Unknown]
  - Dyspnoea [Unknown]
